FAERS Safety Report 5246729-7 (Version None)
Quarter: 2007Q1

REPORT INFORMATION
  Report Type: 
  Country: None (occurrence: None)
  Receive Date: 20070220
  Receipt Date: 20070205
  Transmission Date: 20070707
  Serious: Yes (Hospitalization)
  Sender: FDA-Public Use
  Company Number: 2006PV024522

PATIENT
  Age: 65 Year
  Sex: Female
  Weight: 116.5744 kg

DRUGS (9)
  1. BYETTA [Suspect]
     Indication: DIABETES MELLITUS NON-INSULIN-DEPENDENT
     Dosage: SEE IMAGE
     Route: 058
     Dates: start: 20061001, end: 20061031
  2. BYETTA [Suspect]
     Indication: DIABETES MELLITUS NON-INSULIN-DEPENDENT
     Dosage: SEE IMAGE
     Route: 058
     Dates: start: 20061101
  3. AMARYL [Concomitant]
  4. LASIX [Concomitant]
  5. VYTORIN [Concomitant]
  6. HYZAAR [Concomitant]
  7. ASPIRIN [Concomitant]
  8. MICRO-K [Concomitant]
  9. ATENOLOL [Concomitant]

REACTIONS (6)
  - ALANINE AMINOTRANSFERASE INCREASED [None]
  - ASPARTATE AMINOTRANSFERASE INCREASED [None]
  - BLOOD GLUCOSE INCREASED [None]
  - CARDIOMEGALY [None]
  - CELLULITIS [None]
  - WHITE BLOOD CELL COUNT INCREASED [None]
